FAERS Safety Report 22639908 (Version 1)
Quarter: 2023Q2

REPORT INFORMATION
  Report Type: Spontaneous
  Country: US (occurrence: None)
  Receive Date: 20230622
  Receipt Date: 20230622
  Transmission Date: 20230722
  Serious: Yes (Life-Threatening, Disabling, Other)
  Sender: FDA-Public Use
  Company Number: None

PATIENT
  Age: 68 Year
  Sex: Male
  Weight: 102.06 kg

DRUGS (1)
  1. UNSPECIFIED INGREDIENT [Suspect]
     Active Substance: UNSPECIFIED INGREDIENT
     Indication: Product used for unknown indication
     Dosage: FREQUENCY : TWICE A DAY;?
     Route: 048
     Dates: start: 20120205, end: 20120208

REACTIONS (15)
  - Fall [None]
  - Multiple injuries [None]
  - Skin haemorrhage [None]
  - Sciatica [None]
  - Staphylococcal infection [None]
  - Hepatitis C [None]
  - Hypoaesthesia [None]
  - Leg amputation [None]
  - Post procedural infection [None]
  - Insurance issue [None]
  - Arthralgia [None]
  - Blindness [None]
  - Screaming [None]
  - Staphylococcal abscess [None]
  - Postoperative wound infection [None]

NARRATIVE: CASE EVENT DATE: 20120208
